FAERS Safety Report 4728356-0 (Version None)
Quarter: 2005Q3

REPORT INFORMATION
  Report Type: 
  Country: None (occurrence: None)
  Receive Date: 20050727
  Receipt Date: 20050711
  Transmission Date: 20060218
  Serious: Yes (Other)
  Sender: FDA-Public Use
  Company Number: A-US2005-10145

PATIENT
  Age: 2 Year
  Sex: Female
  Weight: 15.9 kg

DRUGS (9)
  1. ZAVESCA [Suspect]
     Indication: TAY-SACHS DISEASE
     Dosage: 50 MG, TID, ORAL
     Route: 048
     Dates: start: 20050624
  2. PHENOBARBITAL TAB [Concomitant]
  3. TOPAMAX [Concomitant]
  4. TRILEPTAL [Concomitant]
  5. PULMICORT [Concomitant]
  6. PREVACID [Concomitant]
  7. NASONEX (MOMETASONE FUOROATE) [Concomitant]
  8. DUONEB [Concomitant]
  9. CULTUREL [Concomitant]

REACTIONS (2)
  - CONDITION AGGRAVATED [None]
  - CONVULSION [None]
